FAERS Safety Report 8457307-0 (Version None)
Quarter: 2012Q2

REPORT INFORMATION
  Report Type: 
  Country: None (occurrence: None)
  Receive Date: 20120621
  Receipt Date: 20120606
  Transmission Date: 20120825
  Serious: Yes (Death)
  Sender: FDA-Public Use
  Company Number: GB-TEVA-343672ISR

PATIENT
  Sex: Female

DRUGS (3)
  1. DAUNORUBICIN HCL [Suspect]
     Dates: start: 20120413, end: 20120514
  2. LESTAURTINIB [Suspect]
     Dosage: LESTAURTINIB (CEP-701) OR PLACEBO
     Dates: start: 20120413, end: 20120514
  3. CYTARABINE [Suspect]
     Dates: start: 20120413, end: 20120514

REACTIONS (1)
  - INFECTION [None]
